FAERS Safety Report 8393600-8 (Version None)
Quarter: 2012Q2

REPORT INFORMATION
  Report Type: 
  Country: None (occurrence: None)
  Receive Date: 20120530
  Receipt Date: 20120518
  Transmission Date: 20120825
  Serious: Yes (Hospitalization)
  Sender: FDA-Public Use
  Company Number: FR-BRISTOL-MYERS SQUIBB COMPANY-16587347

PATIENT
  Age: 50 Year
  Sex: Male

DRUGS (4)
  1. FLUOROURACIL [Suspect]
     Indication: HEAD AND NECK CANCER
     Dosage: 5/CYCLE NO OF INF 15
     Route: 041
     Dates: start: 20110110, end: 20110225
  2. CISPLATIN [Suspect]
     Indication: HEAD AND NECK CANCER
     Dosage: X1 CYCLE NO OF INF 3
     Route: 041
     Dates: start: 20110110, end: 20110221
  3. DOCETAXEL [Suspect]
     Indication: HEAD AND NECK CANCER
     Dosage: 1/CYCLE NO OF INF 3
     Route: 041
     Dates: start: 20110110, end: 20110221
  4. CETUXIMAB [Suspect]
     Indication: HEAD AND NECK CANCER
     Dosage: X1 CYCLE FOLLOWED BY 475 MG
     Route: 041
     Dates: start: 20110323, end: 20110512

REACTIONS (2)
  - VENOUS THROMBOSIS [None]
  - DEVICE RELATED INFECTION [None]
